FAERS Safety Report 8625133-5 (Version None)
Quarter: 2012Q3

REPORT INFORMATION
  Report Type: 
  Country: None (occurrence: None)
  Receive Date: 20120827
  Receipt Date: 20120820
  Transmission Date: 20120928
  Serious: Yes (Hospitalization)
  Sender: FDA-Public Use
  Company Number: GB-GLAXOSMITHKLINE-B0823889A

PATIENT
  Sex: Male
  Weight: 2.2 kg

DRUGS (9)
  1. FLUOXETINE [Suspect]
     Indication: DEPRESSION
     Dosage: 60MG PER DAY
     Route: 064
     Dates: start: 20100621, end: 20111004
  2. DIHYDROCODEINE [Suspect]
     Indication: PAIN
     Dosage: 60MG PER DAY
     Route: 064
     Dates: start: 20100315
  3. PROPRANOLOL [Suspect]
     Indication: ANXIETY
     Dosage: 20MG PER DAY
     Route: 064
     Dates: start: 20090505
  4. SEROQUEL [Suspect]
     Indication: ANXIETY
     Dosage: 400MG PER DAY
     Route: 064
     Dates: start: 20110323, end: 20110910
  5. SEROQUEL [Suspect]
     Indication: DEPRESSION
     Dosage: 400MG PER DAY
     Route: 064
     Dates: start: 20110323, end: 20110910
  6. CHLORPROMAZINE [Suspect]
     Indication: ANXIETY
     Dosage: 25MG PER DAY
     Route: 064
     Dates: start: 20110922
  7. OMEPRAZOLE [Suspect]
     Indication: DYSPEPSIA
     Dosage: 20MG PER DAY
     Route: 064
     Dates: start: 20080919
  8. PROPRANOLOL [Suspect]
     Indication: PALPITATIONS
     Dosage: 20MG PER DAY
     Route: 064
     Dates: start: 20090505
  9. CITALOPRAM HYDROBROMIDE [Suspect]
     Indication: DEPRESSION
     Dosage: 20MG PER DAY
     Route: 064
     Dates: start: 20111004

REACTIONS (5)
  - PREMATURE BABY [None]
  - DRUG WITHDRAWAL SYNDROME NEONATAL [None]
  - NEONATAL RESPIRATORY DISTRESS SYNDROME [None]
  - PNEUMOTHORAX [None]
  - HYPOCALCAEMIA [None]
